FAERS Safety Report 16539260 (Version 5)
Quarter: 2022Q4

REPORT INFORMATION
  Report Type: Other
  Country: DE (occurrence: DE)
  Receive Date: 20190708
  Receipt Date: 20221018
  Transmission Date: 20230112
  Serious: Yes (Death, Hospitalization)
  Sender: FDA-Public Use
  Company Number: DE-ROCHE-2348859

PATIENT
  Sex: Female
  Weight: 70 kg

DRUGS (3)
  1. RITUXIMAB [Suspect]
     Active Substance: RITUXIMAB
     Indication: Follicular lymphoma
     Route: 065
  2. OBINUTUZUMAB [Suspect]
     Active Substance: OBINUTUZUMAB
     Indication: Follicular lymphoma
     Route: 042
     Dates: start: 20180219, end: 20190109
  3. BENDAMUSTINE [Suspect]
     Active Substance: BENDAMUSTINE
     Indication: Follicular lymphoma
     Route: 065

REACTIONS (12)
  - Enterovirus infection [Fatal]
  - Hypogammaglobulinaemia [Fatal]
  - Multiple organ dysfunction syndrome [Fatal]
  - Meningitis enteroviral [Fatal]
  - Lower gastrointestinal haemorrhage [Fatal]
  - Retroperitoneal haemorrhage [Fatal]
  - Seizure [Fatal]
  - Off label use [Fatal]
  - Colitis ulcerative [Not Recovered/Not Resolved]
  - Deafness [Not Recovered/Not Resolved]
  - Disturbance in attention [Not Recovered/Not Resolved]
  - Hypotension [Unknown]

NARRATIVE: CASE EVENT DATE: 20190101
